FAERS Safety Report 9539391 (Version 1)
Quarter: 2013Q3

REPORT INFORMATION
  Report Type: Spontaneous
  Country: US (occurrence: US)
  Receive Date: 20130920
  Receipt Date: 20130920
  Transmission Date: 20140515
  Serious: Yes (Other)
  Sender: FDA-Public Use
  Company Number: US-ASTRAZENECA-2013SE68862

PATIENT
  Age: 66 Year
  Sex: Female
  Weight: 86.2 kg

DRUGS (10)
  1. TAMOXIFEN [Suspect]
     Indication: BREAST CANCER
     Route: 048
     Dates: start: 2010
  2. FASLODEX [Suspect]
     Indication: BREAST CANCER METASTATIC
     Dosage: ONCE A MONTH
     Route: 030
     Dates: start: 201204
  3. HERCEPTIN [Concomitant]
     Indication: BREAST CANCER
     Route: 050
     Dates: start: 2009
  4. HERCEPTIN [Concomitant]
     Indication: BREAST CANCER
     Route: 050
  5. TYKERB [Concomitant]
     Indication: BREAST CANCER
     Dosage: 250 MG 2 PILLS
     Dates: start: 2011
  6. POTASSIUM [Concomitant]
     Indication: BLOOD POTASSIUM DECREASED
  7. POTASSIUM [Concomitant]
     Indication: BLOOD POTASSIUM DECREASED
     Dates: start: 20130829
  8. VITAMINS [Concomitant]
  9. PROZAC [Concomitant]
     Indication: DEPRESSION
     Dates: start: 201305
  10. TRIAMTERENE HCTZ [Concomitant]
     Indication: HYPERTENSION
     Dosage: 37.5  25 MG DAILY

REACTIONS (8)
  - Hepatic lesion [Unknown]
  - Depression [Unknown]
  - Feeling abnormal [Unknown]
  - Hypertension [Unknown]
  - Lymphadenitis [Unknown]
  - Vaginal haemorrhage [Recovered/Resolved]
  - Blood potassium decreased [Unknown]
  - Diarrhoea [Not Recovered/Not Resolved]
